FAERS Safety Report 25677643 (Version 1)
Quarter: 2025Q3

REPORT INFORMATION
  Report Type: Spontaneous
  Country: SG (occurrence: SG)
  Receive Date: 20250813
  Receipt Date: 20250813
  Transmission Date: 20251021
  Serious: Yes (Life-Threatening)
  Sender: MSN LABORATORIES PRIVATE LIMITED
  Company Number: SG-MLMSERVICE-20250718-PI577528-00057-2

PATIENT

DRUGS (4)
  1. ATORVASTATIN [Suspect]
     Active Substance: ATORVASTATIN
     Indication: Coronary artery disease
     Dosage: EVERY AFTERNOON OR EVENING (Q.P.M).
     Route: 065
  2. ATORVASTATIN [Suspect]
     Active Substance: ATORVASTATIN
     Dosage: REDUCED TO 10 MG EVERY AFTERNOON OR EVENING (Q.P.M).
     Route: 065
  3. TICAGRELOR [Suspect]
     Active Substance: TICAGRELOR
     Indication: Antiplatelet therapy
     Dosage: EVERY 12 HOUR
     Route: 065
  4. EZETIMIBE [Concomitant]
     Active Substance: EZETIMIBE
     Indication: Coronary artery disease
     Dosage: EVERY MORNING (Q.A.M)
     Route: 065

REACTIONS (5)
  - Myopathy [Unknown]
  - Drug-genetic interaction [Unknown]
  - Drug level increased [Unknown]
  - Drug interaction [Unknown]
  - Blood alkaline phosphatase increased [Unknown]
